FAERS Safety Report 8401571-0 (Version None)
Quarter: 2012Q2

REPORT INFORMATION
  Report Type: 
  Country: None (occurrence: None)
  Receive Date: 20120601
  Receipt Date: 20120210
  Transmission Date: 20120825
  Serious: Yes (Other)
  Sender: FDA-Public Use
  Company Number: US-MYLANLABS-2012S1003060

PATIENT
  Age: 16 Year
  Sex: Female

DRUGS (3)
  1. LISDEXAMFETAMINE DIMESYLATE [Concomitant]
     Indication: ATTENTION DEFICIT/HYPERACTIVITY DISORDER
     Route: 048
  2. CLINDAMYCIN AND BENZOYL PEROXIDE [Suspect]
     Indication: ACNE
     Route: 061
     Dates: start: 20110801, end: 20120208
  3. ZOLOFT [Concomitant]
     Indication: DEPRESSION
     Route: 048
     Dates: start: 20100101

REACTIONS (1)
  - HYPERSENSITIVITY [None]
